FAERS Safety Report 14067159 (Version 2)
Quarter: 2017Q4

REPORT INFORMATION
  Report Type: Spontaneous
  Country: KR (occurrence: KR)
  Receive Date: 20171009
  Receipt Date: 20171024
  Transmission Date: 20180321
  Serious: Yes (Other)
  Sender: FDA-Public Use
  Company Number: KR-BAYER-2017-185363

PATIENT
  Age: 51 Year
  Sex: Male

DRUGS (2)
  1. NEXAVAR [Suspect]
     Active Substance: SORAFENIB
     Indication: HEPATOCELLULAR CARCINOMA
     Dosage: 274 MG, UNK
     Route: 048
     Dates: start: 20160708
  2. TENOFOVIR [Concomitant]
     Active Substance: TENOFOVIR
     Indication: HEPATITIS B
     Dosage: 300 MG, UNK

REACTIONS (21)
  - Mobility decreased [None]
  - Aspartate aminotransferase increased [None]
  - Gamma-glutamyltransferase decreased [None]
  - Natural killer cell count increased [None]
  - Abdominal distension [None]
  - Blood bilirubin increased [None]
  - Fatigue [None]
  - Liver disorder [None]
  - Alanine aminotransferase increased [None]
  - Blood bilirubin decreased [None]
  - Burning sensation [None]
  - Pulse abnormal [None]
  - Alanine aminotransferase decreased [None]
  - Epidermolysis [None]
  - Tongue erythema [None]
  - Pain in extremity [None]
  - Faeces soft [None]
  - Tongue discolouration [None]
  - Gamma-glutamyltransferase increased [None]
  - Aspartate aminotransferase decreased [None]
  - Skin exfoliation [None]

NARRATIVE: CASE EVENT DATE: 201607
